FAERS Safety Report 25904066 (Version 5)
Quarter: 2025Q4

REPORT INFORMATION
  Report Type: Spontaneous
  Country: JP (occurrence: JP)
  Receive Date: 20251010
  Receipt Date: 20251209
  Transmission Date: 20260117
  Serious: Yes (Other)
  Sender: ALEXION PHARMACEUTICALS
  Company Number: JP-ASTRAZENECA-202510JPN005471JP

PATIENT
  Age: 73 Year
  Sex: Male
  Weight: 55.4 kg

DRUGS (4)
  1. TEZSPIRE [Suspect]
     Active Substance: TEZEPELUMAB-EKKO
     Indication: Asthma
     Dosage: 210 MILLIGRAM, Q4W
     Dates: start: 20240105
  2. TEZSPIRE [Suspect]
     Active Substance: TEZEPELUMAB-EKKO
  3. PREDNISOLONE [Concomitant]
     Active Substance: PREDNISOLONE
     Dosage: 1 MG/DAY
  4. PRANLUKAST [Concomitant]
     Active Substance: PRANLUKAST
     Route: 065

REACTIONS (2)
  - Eosinophil count increased [Recovering/Resolving]
  - Eosinophilic pneumonia chronic [Recovering/Resolving]

NARRATIVE: CASE EVENT DATE: 20250725
